FAERS Safety Report 17536856 (Version 3)
Quarter: 2020Q2

REPORT INFORMATION
  Report Type: Spontaneous
  Country: HU (occurrence: HU)
  Receive Date: 20200313
  Receipt Date: 20200624
  Transmission Date: 20200713
  Serious: Yes (Other)
  Sender: FDA-Public Use
  Company Number: NVSC2020HU070821

PATIENT
  Age: 13 Year
  Sex: Female

DRUGS (4)
  1. PROTOPIC [Suspect]
     Active Substance: TACROLIMUS
     Indication: SYSTEMIC SCLERODERMA
     Dosage: 2 UNK, QD
     Route: 061
     Dates: start: 201701
  2. ELOCON [Suspect]
     Active Substance: MOMETASONE FUROATE
     Indication: SYSTEMIC SCLERODERMA
     Dosage: 1 UNK, QD
     Route: 061
     Dates: start: 201701
  3. METHOTREXATE. [Suspect]
     Active Substance: METHOTREXATE
     Indication: SCLERODERMA
     Dosage: UNKNOWN
     Route: 048
  4. TACROLIMUS. [Suspect]
     Active Substance: TACROLIMUS
     Indication: SCLERODERMA
     Dosage: UNK
     Route: 065

REACTIONS (7)
  - Product use in unapproved indication [Unknown]
  - Scleroderma [Unknown]
  - Skin hypertrophy [Unknown]
  - Raynaud^s phenomenon [Unknown]
  - Pigmentation disorder [Unknown]
  - Drug ineffective for unapproved indication [Unknown]
  - Disease progression [Unknown]
